FAERS Safety Report 9859624 (Version 2)
Quarter: 2014Q1

REPORT INFORMATION
  Report Type: Spontaneous
  Country: AU (occurrence: AU)
  Receive Date: 20140131
  Receipt Date: 20140131
  Transmission Date: 20141002
  Serious: Yes (Other)
  Sender: FDA-Public Use
  Company Number: AU-ACTAVIS-2013-15578

PATIENT
  Age: 61 Year
  Sex: Female

DRUGS (3)
  1. ONCOTAXEL [Suspect]
     Indication: BREAST CANCER
     Dosage: UNK
     Route: 042
     Dates: start: 20130801, end: 20130822
  2. THYROXINE [Concomitant]
     Indication: HYPOTHYROIDISM
     Dosage: UNK
     Route: 065
  3. MEXALEN [Concomitant]
     Indication: NAUSEA
     Dosage: 10 MG, PRN
     Route: 065

REACTIONS (7)
  - Pharyngeal oedema [Recovered/Resolved]
  - Flushing [Recovered/Resolved]
  - Back pain [Recovered/Resolved]
  - Chest discomfort [Recovered/Resolved]
  - Hypoaesthesia [Recovered/Resolved]
  - Hypoaesthesia oral [Recovered/Resolved]
  - Swelling face [Recovered/Resolved]
